FAERS Safety Report 8159587-8 (Version None)
Quarter: 2012Q1

REPORT INFORMATION
  Report Type: 
  Country: None (occurrence: None)
  Receive Date: 20120223
  Receipt Date: 20120218
  Transmission Date: 20120608
  Serious: Yes (Hospitalization, Other)
  Sender: FDA-Public Use
  Company Number: US-AMGEN-USASP2012011059

PATIENT
  Sex: Female

DRUGS (2)
  1. NEULASTA [Suspect]
     Indication: OVARIAN CANCER
     Dates: start: 20120125
  2. ANTINEOPLASTIC AGENTS [Concomitant]
     Indication: OVARIAN CANCER

REACTIONS (6)
  - PARAESTHESIA [None]
  - HYPOAESTHESIA [None]
  - DYSPNOEA [None]
  - DIZZINESS [None]
  - DIARRHOEA [None]
  - MALAISE [None]
